FAERS Safety Report 9733685 (Version 1)
Quarter: 2013Q4

REPORT INFORMATION
  Report Type: Report from Study
  Country: BR (occurrence: BR)
  Receive Date: 20131205
  Receipt Date: 20131205
  Transmission Date: 20140711
  Serious: Yes (Other)
  Sender: FDA-Public Use
  Company Number: PHHY2013BR142005

PATIENT
  Sex: Female
  Weight: 79 kg

DRUGS (2)
  1. ACLASTA [Suspect]
     Indication: OSTEOPOROSIS
     Dosage: 5 MG, UNK
     Route: 042
     Dates: start: 2012
  2. DIOVAN [Concomitant]
     Dosage: UNK UKN, UNK
     Dates: start: 2000

REACTIONS (4)
  - Renal disorder [Unknown]
  - Urinary tract disorder [Unknown]
  - Fear [Unknown]
  - Swelling [Unknown]
